FAERS Safety Report 10096753 (Version 2)
Quarter: 2015Q4

REPORT INFORMATION
  Report Type: Spontaneous
  Country: US (occurrence: US)
  Receive Date: 20140422
  Receipt Date: 20151019
  Transmission Date: 20160304
  Serious: No
  Sender: FDA-Public Use
  Company Number: US-009507513-1404USA011182

PATIENT
  Sex: Female

DRUGS (7)
  1. COPEGUS [Suspect]
     Active Substance: RIBAVIRIN
     Indication: CHRONIC HEPATITIS C
     Dosage: 1000 MG, 1 IN 1 D(QD)
     Route: 048
     Dates: start: 20130903
  2. COPEGUS [Suspect]
     Active Substance: RIBAVIRIN
     Dosage: 800 MG, QD
     Dates: start: 20131008
  3. PEGASYS [Suspect]
     Active Substance: PEGINTERFERON ALFA-2A
     Indication: CHRONIC HEPATITIS C
     Dosage: 135 MICROGRAM, 1 IN 1 WK (QW)
     Route: 058
     Dates: start: 20130903
  4. PEGASYS [Suspect]
     Active Substance: PEGINTERFERON ALFA-2A
     Dosage: 180MICROGRAM, 1 IN 1 WK (QW)
     Route: 058
  5. VICTRELIS [Suspect]
     Active Substance: BOCEPREVIR
     Indication: CHRONIC HEPATITIS C
     Dosage: 800 MG, TID
     Route: 048
  6. ZOLOFT [Concomitant]
     Active Substance: SERTRALINE HYDROCHLORIDE
  7. LAMOTRIGINE. [Concomitant]
     Active Substance: LAMOTRIGINE

REACTIONS (10)
  - Neutropenia [Unknown]
  - Dry mouth [Unknown]
  - Rash [Recovered/Resolved]
  - Nasal congestion [Unknown]
  - Influenza like illness [Unknown]
  - Nausea [Unknown]
  - Fatigue [Unknown]
  - Leukopenia [Unknown]
  - Anaemia [Unknown]
  - Otitis media [Recovered/Resolved]
